FAERS Safety Report 18445258 (Version 2)
Quarter: 2020Q4

REPORT INFORMATION
  Report Type: Spontaneous
  Country: NL (occurrence: NL)
  Receive Date: 20201030
  Receipt Date: 20201204
  Transmission Date: 20210114
  Serious: No
  Sender: FDA-Public Use
  Company Number: NL-PFIZER INC-2020410147

PATIENT

DRUGS (1)
  1. SAYANA PRESS [Suspect]
     Active Substance: MEDROXYPROGESTERONE\MEDROXYPROGESTERONE ACETATE
     Dosage: STRENGTH: 104 MG/0.65 ML

REACTIONS (2)
  - Device issue [Unknown]
  - Drug dose omission by device [Unknown]
